FAERS Safety Report 8437900-1 (Version None)
Quarter: 2012Q2

REPORT INFORMATION
  Report Type: 
  Country: None (occurrence: None)
  Receive Date: 20120614
  Receipt Date: 20120516
  Transmission Date: 20120825
  Serious: No
  Sender: FDA-Public Use
  Company Number: US-AMGEN-USASP2012009072

PATIENT
  Age: 72 Year
  Sex: Female
  Weight: 63.039 kg

DRUGS (3)
  1. NOROXIN [Concomitant]
     Indication: URINARY TRACT INFECTION
  2. AMOXIL [Concomitant]
     Indication: URINARY TRACT INFECTION
  3. PROLIA [Suspect]
     Indication: OSTEOPOROSIS POSTMENOPAUSAL
     Dosage: 60 MG, Q6MO
     Route: 058
     Dates: start: 20110830, end: 20110830

REACTIONS (3)
  - URINARY TRACT INFECTION [None]
  - KYPHOSIS [None]
  - OSTEOARTHRITIS [None]
